FAERS Safety Report 5353091-8 (Version None)
Quarter: 2007Q2

REPORT INFORMATION
  Report Type: 
  Country: None (occurrence: None)
  Receive Date: 20070611
  Receipt Date: 20070530
  Transmission Date: 20071010
  Serious: Yes (Other)
  Sender: FDA-Public Use
  Company Number: CO-PFIZER INC-2007045224

PATIENT
  Sex: Female

DRUGS (2)
  1. LYRICA [Suspect]
     Indication: EPILEPSY
     Route: 048
     Dates: start: 20070130, end: 20070130
  2. CARBAMAZEPINE [Concomitant]

REACTIONS (4)
  - COORDINATION ABNORMAL [None]
  - MEMORY IMPAIRMENT [None]
  - PARALYSIS [None]
  - SPEECH DISORDER [None]
